FAERS Safety Report 9236541 (Version 2)
Quarter: 2013Q2

REPORT INFORMATION
  Report Type: Spontaneous
  Country: US (occurrence: None)
  Receive Date: 20130329
  Receipt Date: 20130412
  Transmission Date: 20140414
  Serious: Yes (Death)
  Sender: FDA-Public Use
  Company Number: 2013PROUSA02676

PATIENT
  Age: 75 Year
  Sex: Male
  Weight: 51.2 kg

DRUGS (9)
  1. PROVENGE (SIPULEUCEL-T) SUSPENSION [Suspect]
     Indication: PROSTATE CANCER METASTATIC
     Route: 042
     Dates: start: 20130121, end: 20130121
  2. SPIRIVA COMBI (TIOTROPIUM BROMIDE) [Concomitant]
  3. CALCIUM + VITAMIN D (CALCIUM, COLECALCIFEROL) [Concomitant]
  4. IBUPROFEN (IBUPROFEN) [Concomitant]
  5. ZOLPIDEM (ZOLPIDEM TARTRATE) [Concomitant]
  6. LASIX (FUROSEMIDE) [Concomitant]
  7. XGEVA (DENOSUMAB) [Concomitant]
  8. DURAGESIC MAT (FENTANYL) [Concomitant]
  9. NORCO (HYDROCODONE BITARTRATE, PARACETAMOL) [Concomitant]

REACTIONS (9)
  - Malignant neoplasm progression [None]
  - Prostate cancer metastatic [None]
  - Fall [None]
  - Muscular weakness [None]
  - Oedema peripheral [None]
  - Dyspnoea [None]
  - Feeling abnormal [None]
  - Lumbar vertebral fracture [None]
  - Spinal column stenosis [None]
